FAERS Safety Report 9750061 (Version 1)
Quarter: 2013Q4

REPORT INFORMATION
  Report Type: Spontaneous
  Country: GR (occurrence: GR)
  Receive Date: 20131212
  Receipt Date: 20131212
  Transmission Date: 20140711
  Serious: No
  Sender: FDA-Public Use
  Company Number: GR-GILEAD-GR-CVT-090761

PATIENT
  Age: 82 Year
  Sex: Female

DRUGS (8)
  1. RANEXA [Suspect]
     Indication: ANGINA PECTORIS
     Route: 048
  2. FUROSEMIDE                         /00032601/ [Concomitant]
  3. AMILORIDE HYDROCHLORIDE [Concomitant]
  4. ISOSORBIDE MONONITRATE [Concomitant]
  5. GLYCERYL TRINITRATE [Concomitant]
     Route: 062
  6. AMLODIPINE W/VALSARTAN [Concomitant]
  7. ATORVASTATIN                       /01326101/ [Concomitant]
  8. OMACOR [Concomitant]

REACTIONS (5)
  - Chest pain [Not Recovered/Not Resolved]
  - Discomfort [Recovered/Resolved]
  - Dizziness [Recovered/Resolved]
  - Asthenia [Recovered/Resolved]
  - Dyspnoea [Recovered/Resolved]
